FAERS Safety Report 6389912 (Version 17)
Quarter: 2014Q4

REPORT INFORMATION
  Report Type: Spontaneous
  Country: US (occurrence: US)
  Receive Date: 20070823
  Receipt Date: 20141225
  Transmission Date: 20150529
  Serious: Yes (Hospitalization, Other)
  Sender: FDA-Public Use
  Company Number: US-ROCHE-503113

PATIENT
  Age: 19 Year
  Sex: Male
  Weight: 65.8 kg

DRUGS (2)
  1. ZITHROMAX [Concomitant]
     Active Substance: AZITHROMYCIN DIHYDRATE
     Indication: BRONCHITIS
     Route: 065
  2. ACCUTANE [Suspect]
     Active Substance: ISOTRETINOIN
     Indication: ACNE
     Dosage: DOSING REGIMEN 40 MG ON ODD DAYS AND 80 MG ON EVEN DAYS.
     Route: 065
     Dates: start: 19991208, end: 20000509

REACTIONS (29)
  - Crohn^s disease [Unknown]
  - Hyperthyroidism [Recovered/Resolved]
  - Pneumoperitoneum [Unknown]
  - Small intestinal obstruction [Recovered/Resolved]
  - Mesenteric vein thrombosis [Recovered/Resolved]
  - Depression [Unknown]
  - Bradycardia [Unknown]
  - Pulmonary embolism [Recovered/Resolved]
  - Failure to thrive [Unknown]
  - Weight decreased [Unknown]
  - Paraesthesia [Unknown]
  - Hiatus hernia [Unknown]
  - Inflammatory bowel disease [Unknown]
  - Ileal stenosis [Unknown]
  - Colitis ulcerative [Not Recovered/Not Resolved]
  - Tachycardia [Unknown]
  - Anaemia [Recovered/Resolved]
  - Venous thrombosis limb [Unknown]
  - Deep vein thrombosis [Unknown]
  - Ileus paralytic [Recovering/Resolving]
  - Pouchitis [Not Recovered/Not Resolved]
  - Gastrointestinal haemorrhage [Unknown]
  - Colitis ulcerative [Unknown]
  - Colitis [Unknown]
  - Anorectal stenosis [Recovered/Resolved]
  - Portal vein thrombosis [Recovered/Resolved]
  - Colitis [Unknown]
  - Iron deficiency anaemia [Unknown]
  - Chest pain [Unknown]

NARRATIVE: CASE EVENT DATE: 20020725
